FAERS Safety Report 20278276 (Version 4)
Quarter: 2023Q1

REPORT INFORMATION
  Report Type: Report from Study
  Country: AR (occurrence: AR)
  Receive Date: 20220103
  Receipt Date: 20230314
  Transmission Date: 20230418
  Serious: Yes (Other)
  Sender: FDA-Public Use
  Company Number: AR-NOVARTISPH-NVSC2021AR200290

PATIENT
  Age: 49 Year
  Sex: Female

DRUGS (4)
  1. ERELZI [Suspect]
     Active Substance: ETANERCEPT-SZZS
     Indication: Psoriasis
     Dosage: 100 MG, QW
     Route: 058
     Dates: start: 20210724
  2. ERELZI [Suspect]
     Active Substance: ETANERCEPT-SZZS
     Dosage: 50 MG, QMO
     Route: 058
  3. ERELZI [Suspect]
     Active Substance: ETANERCEPT-SZZS
     Dosage: 50 MG, QW
     Route: 058
  4. ERELZI [Suspect]
     Active Substance: ETANERCEPT-SZZS
     Dosage: 200 MG, QW
     Route: 058

REACTIONS (12)
  - Infarction [Unknown]
  - Thrombosis [Unknown]
  - Rebound psoriasis [Unknown]
  - Psoriasis [Unknown]
  - Emotional distress [Unknown]
  - Stress [Unknown]
  - Anxiety [Unknown]
  - Blood pressure increased [Unknown]
  - Condition aggravated [Unknown]
  - Pruritus [Unknown]
  - Incorrect dose administered [Unknown]
  - Drug ineffective [Unknown]

NARRATIVE: CASE EVENT DATE: 20210827
